FAERS Safety Report 7043998-8 (Version None)
Quarter: 2010Q4

REPORT INFORMATION
  Report Type: 
  Country: None (occurrence: None)
  Receive Date: 20101012
  Receipt Date: 20101012
  Transmission Date: 20110411
  Serious: Yes (Other)
  Sender: FDA-Public Use
  Company Number: None

PATIENT
  Sex: Female
  Weight: 83.9154 kg

DRUGS (11)
  1. ORACEA [Suspect]
     Indication: ROSACEA
     Dosage: 40 MG DAY PO
     Route: 048
     Dates: start: 20100701, end: 20100901
  2. METFORMIN [Concomitant]
  3. PRISTIQ [Concomitant]
  4. ZOCOR [Concomitant]
  5. FISH OIL [Concomitant]
  6. VIT A, [Concomitant]
  7. VIT B COMPLEX [Concomitant]
  8. VIT C [Concomitant]
  9. VIT D [Concomitant]
  10. VIT E [Concomitant]
  11. COQ10 [Concomitant]

REACTIONS (9)
  - ABDOMINAL PAIN UPPER [None]
  - DYSGEUSIA [None]
  - FEELING ABNORMAL [None]
  - GASTRIC DISORDER [None]
  - HEADACHE [None]
  - HYPERSOMNIA [None]
  - PRURITUS GENERALISED [None]
  - SWELLING [None]
  - TONGUE DISCOLOURATION [None]
